FAERS Safety Report 16640493 (Version 4)
Quarter: 2019Q4

REPORT INFORMATION
  Report Type: Report from Study
  Country: None (occurrence: BR)
  Receive Date: 20190729
  Receipt Date: 20191013
  Transmission Date: 20200122
  Serious: Yes (Hospitalization, Other)
  Sender: FDA-Public Use
  Company Number: BR-ABBVIE-19K-020-2868413-00

PATIENT
  Age: 73 Year
  Sex: Female
  Weight: 62 kg

DRUGS (2)
  1. HUMIRA [Suspect]
     Active Substance: ADALIMUMAB
     Route: 058
     Dates: start: 2019
  2. HUMIRA [Suspect]
     Active Substance: ADALIMUMAB
     Indication: RHEUMATOID ARTHRITIS
     Route: 058
     Dates: start: 20190614, end: 2019

REACTIONS (11)
  - Paraesthesia [Unknown]
  - Hypertension [Recovered/Resolved]
  - Neck pain [Unknown]
  - Discomfort [Unknown]
  - Pain [Unknown]
  - Dementia Alzheimer^s type [Unknown]
  - Blood pressure fluctuation [Unknown]
  - Cerebrovascular accident [Recovering/Resolving]
  - Malaise [Unknown]
  - Heart rate decreased [Unknown]
  - Urinary tract infection [Unknown]

NARRATIVE: CASE EVENT DATE: 2019
